FAERS Safety Report 6563977-4 (Version None)
Quarter: 2010Q1

REPORT INFORMATION
  Report Type: 
  Country: None (occurrence: None)
  Receive Date: 20100131
  Receipt Date: 20100120
  Transmission Date: 20100710
  Serious: Yes (Other)
  Sender: FDA-Public Use
  Company Number: US-JNJFOC-20100109571

PATIENT
  Sex: Female
  Weight: 56.7 kg

DRUGS (9)
  1. REMICADE [Suspect]
     Indication: CROHN'S DISEASE
     Route: 042
  2. REMICADE [Suspect]
     Route: 042
  3. REMICADE [Suspect]
     Dosage: 3 INFUSIONS PRIOR TO BASELINE
     Route: 042
  4. REMICADE [Suspect]
     Route: 042
  5. ANTIBIOTICS [Concomitant]
     Indication: CROHN'S DISEASE
  6. NARCOTIC ANALGESICS, NOS [Concomitant]
     Indication: CROHN'S DISEASE
  7. CELLCEPT [Concomitant]
     Indication: CROHN'S DISEASE
  8. RIFAMPIN [Concomitant]
     Indication: CROHN'S DISEASE
  9. ADALIMUMAB [Concomitant]
     Indication: CROHN'S DISEASE

REACTIONS (2)
  - ANAEMIA [None]
  - FISTULA [None]
